FAERS Safety Report 17190874 (Version 4)
Quarter: 2020Q1

REPORT INFORMATION
  Report Type: Spontaneous
  Country: US (occurrence: US)
  Receive Date: 20191223
  Receipt Date: 20200123
  Transmission Date: 20200409
  Serious: No
  Sender: FDA-Public Use
  Company Number: US-BIOGEN-2014BI047792

PATIENT
  Sex: Female

DRUGS (4)
  1. TECFIDERA [Suspect]
     Active Substance: DIMETHYL FUMARATE
     Indication: MULTIPLE SCLEROSIS
     Route: 048
     Dates: start: 201407
  2. TECFIDERA [Suspect]
     Active Substance: DIMETHYL FUMARATE
     Route: 065
     Dates: start: 20140518, end: 2014
  3. TECFIDERA [Suspect]
     Active Substance: DIMETHYL FUMARATE
     Route: 065
     Dates: start: 20200109
  4. TECFIDERA [Suspect]
     Active Substance: DIMETHYL FUMARATE
     Route: 048
     Dates: start: 20200118

REACTIONS (7)
  - Pain [Unknown]
  - Headache [Recovered/Resolved]
  - Flushing [Recovered/Resolved]
  - Hyperhidrosis [Unknown]
  - Nausea [Recovered/Resolved]
  - Diarrhoea [Recovered/Resolved]
  - Hot flush [Unknown]

NARRATIVE: CASE EVENT DATE: 2014
